FAERS Safety Report 7375945-3 (Version None)
Quarter: 2011Q1

REPORT INFORMATION
  Report Type: 
  Country: None (occurrence: None)
  Receive Date: 20110325
  Receipt Date: 20110304
  Transmission Date: 20110831
  Serious: No
  Sender: FDA-Public Use
  Company Number: US-B.I. PHARMACEUTICALS,INC./RIDGEFIELD-2011-BP-02557BP

PATIENT
  Sex: Female

DRUGS (21)
  1. TOPAMAX [Concomitant]
     Indication: MOOD ALTERED
     Dosage: 200 MG
     Route: 048
  2. AXID [Concomitant]
     Indication: GASTRIC ULCER
     Dosage: 300 MG
     Route: 048
  3. FLEXERIL [Concomitant]
     Indication: MUSCLE RELAXANT THERAPY
     Route: 048
  4. PREVACHOL [Concomitant]
     Indication: BLOOD CHOLESTEROL INCREASED
     Dosage: 80 MG
     Route: 048
  5. CYMBALTA [Concomitant]
     Indication: DEPRESSION
     Route: 048
  6. DOXEPIN [Concomitant]
     Indication: INSOMNIA
     Dosage: 50 MG
     Route: 048
  7. GEMFIBROZOLE [Concomitant]
     Indication: BLOOD CHOLESTEROL INCREASED
     Dosage: 600 MG
     Route: 048
  8. PROAIR HFA [Concomitant]
     Indication: ASTHMA
     Route: 055
  9. LANTUS [Concomitant]
     Indication: TYPE 1 DIABETES MELLITUS
     Route: 058
  10. PREVACAL [Concomitant]
     Indication: CARDIAC DISORDER
     Route: 048
  11. METAXALONE [Concomitant]
     Indication: FIBROMYALGIA
     Dosage: 800 MG
     Route: 048
  12. ISOSORBIDE DINITRATE [Concomitant]
     Dosage: 30 MG
     Route: 048
  13. IMDUR [Concomitant]
     Indication: CARDIAC DISORDER
     Route: 048
  14. FLEXERIL [Concomitant]
     Indication: ARTHRITIS
  15. NABUMETONE [Concomitant]
     Indication: ARTHRITIS
     Dosage: 500 MG
     Route: 048
  16. TYLENOL W/ CODEINE NO. 3 [Concomitant]
     Indication: ARTHRITIS
     Route: 048
  17. COREG [Concomitant]
     Dosage: 50 MG
     Route: 048
  18. NEURONTIN [Concomitant]
     Indication: DIABETIC NEUROPATHY
     Dosage: 4800 MG
     Route: 048
  19. REGULAR INSULIN [Concomitant]
     Indication: TYPE 1 DIABETES MELLITUS
     Route: 058
  20. PRADAXA [Suspect]
     Indication: ATRIAL FIBRILLATION
     Dosage: 300 MG
     Route: 048
     Dates: start: 20110121
  21. TESSALON [Concomitant]
     Indication: COUGH
     Route: 048

REACTIONS (8)
  - DIZZINESS [None]
  - MEMORY IMPAIRMENT [None]
  - ABDOMINAL PAIN [None]
  - NAUSEA [None]
  - HYPERTENSION [None]
  - CHEST PAIN [None]
  - DYSPNOEA [None]
  - CONFUSIONAL STATE [None]
